FAERS Safety Report 4992801-6 (Version None)
Quarter: 2006Q1

REPORT INFORMATION
  Report Type: 
  Country: None (occurrence: None)
  Receive Date: 20060315
  Receipt Date: 20060125
  Transmission Date: 20060701
  Serious: Yes (Other)
  Sender: FDA-Public Use
  Company Number: 2006RL000018

PATIENT
  Age: 58 Year
  Sex: Female

DRUGS (1)
  1. OMACOR [Suspect]
     Indication: BLOOD CHOLESTEROL INCREASED
     Dosage: 1 GM; BID;PO
     Route: 048
     Dates: start: 20050101, end: 20051201

REACTIONS (3)
  - ARTERIAL OCCLUSIVE DISEASE [None]
  - CHEST DISCOMFORT [None]
  - CHEST PAIN [None]
